FAERS Safety Report 13123910 (Version 3)
Quarter: 2017Q1

REPORT INFORMATION
  Report Type: Report from Study
  Country: US (occurrence: US)
  Receive Date: 20170118
  Receipt Date: 20170302
  Transmission Date: 20170428
  Serious: Yes (Hospitalization)
  Sender: FDA-Public Use
  Company Number: PHEH2017US001391

PATIENT
  Age: 61 Year
  Sex: Female
  Weight: 82.2 kg

DRUGS (1)
  1. AFINITOR [Suspect]
     Active Substance: EVEROLIMUS
     Indication: BREAST CANCER METASTATIC
     Dosage: 10 MG, QD
     Route: 048
     Dates: start: 201507

REACTIONS (7)
  - Rectal haemorrhage [Unknown]
  - Fatigue [Unknown]
  - Proctitis [Recovered/Resolved]
  - Colitis [Unknown]
  - Pneumonia [Unknown]
  - Malaise [Unknown]
  - Chest discomfort [Unknown]

NARRATIVE: CASE EVENT DATE: 201609
